FAERS Safety Report 6700687-4 (Version None)
Quarter: 2010Q2

REPORT INFORMATION
  Report Type: 
  Country: None (occurrence: None)
  Receive Date: 20100428
  Receipt Date: 20100422
  Transmission Date: 20101027
  Serious: Yes (Death)
  Sender: FDA-Public Use
  Company Number: US-GILEAD-2010-0028711

PATIENT
  Sex: Female
  Weight: 48.578 kg

DRUGS (9)
  1. LETAIRIS [Suspect]
     Indication: PULMONARY ARTERIAL HYPERTENSION
     Route: 048
     Dates: start: 20080429
  2. VENTAVIS [Concomitant]
     Indication: PULMONARY ARTERIAL HYPERTENSION
     Dates: start: 20081001
  3. TORSEMIDE [Concomitant]
  4. OXYGEN [Concomitant]
  5. TOPROL-XL [Concomitant]
  6. IMODIUM [Concomitant]
  7. PANTOPRAZOLE [Concomitant]
  8. ALLOPURINOL [Concomitant]
  9. IRON [Concomitant]

REACTIONS (1)
  - DEATH [None]
